FAERS Safety Report 7518997-X (Version None)
Quarter: 2011Q2

REPORT INFORMATION
  Report Type: 
  Country: None (occurrence: None)
  Receive Date: 20110602
  Receipt Date: 20110526
  Transmission Date: 20111010
  Serious: Yes (Hospitalization)
  Sender: FDA-Public Use
  Company Number: IT-US-EMD SERONO, INC.-7051338

PATIENT
  Sex: Female

DRUGS (4)
  1. REBIF [Suspect]
     Route: 058
     Dates: start: 20100414, end: 20100819
  2. REBIF [Suspect]
     Dates: start: 20000719
  3. REBIF [Suspect]
     Route: 058
     Dates: start: 20101230
  4. REBIF [Suspect]
     Indication: MULTIPLE SCLEROSIS
     Route: 058
     Dates: start: 19990621

REACTIONS (3)
  - THROMBOCYTOPENIA [None]
  - MULTIPLE SCLEROSIS RELAPSE [None]
  - TREATMENT NONCOMPLIANCE [None]
